FAERS Safety Report 10429918 (Version 1)
Quarter: 2014Q3

REPORT INFORMATION
  Report Type: Spontaneous
  Country: US (occurrence: None)
  Receive Date: 20140903
  Receipt Date: 20140903
  Transmission Date: 20150326
  Serious: No
  Sender: FDA-Public Use
  Company Number: None

PATIENT
  Age: 79 Year
  Sex: Female
  Weight: 50.8 kg

DRUGS (5)
  1. RESVERATROL [Concomitant]
     Active Substance: RESVERATROL
  2. CALCIUM(PROTOCOL BONE SUPPORT) [Concomitant]
  3. DEXAMETHASONE. [Suspect]
     Active Substance: DEXAMETHASONE
     Indication: GINGIVITIS
     Dosage: 1 TSP 4 TIMES A DAY RINSE BY MOUTH PROBABLY OFF LABEL
     Dates: start: 20140528, end: 20140602
  4. MULTI VITAMIN [Concomitant]
     Active Substance: VITAMINS
  5. MELATONIN [Concomitant]
     Active Substance: MELATONIN

REACTIONS (4)
  - Gait disturbance [None]
  - Off label use [None]
  - Headache [None]
  - Dizziness [None]

NARRATIVE: CASE EVENT DATE: 20140530
